FAERS Safety Report 19662449 (Version 6)
Quarter: 2024Q3

REPORT INFORMATION
  Report Type: Spontaneous
  Country: US (occurrence: US)
  Receive Date: 20210805
  Receipt Date: 20240906
  Transmission Date: 20241017
  Serious: Yes (Other)
  Sender: PFIZER
  Company Number: US-PFIZER INC-2021847193

PATIENT
  Age: 65 Year
  Sex: Female
  Weight: 54.43 kg

DRUGS (6)
  1. PREMARIN [Suspect]
     Active Substance: ESTROGENS, CONJUGATED
     Indication: Vaginal disorder
     Dosage: 0.5 G, 2X/WEEK
     Route: 067
     Dates: start: 2011
  2. PREMARIN [Suspect]
     Active Substance: ESTROGENS, CONJUGATED
     Indication: Urinary tract infection
     Dosage: 0.5 G, 2X/WEEK
     Route: 067
     Dates: start: 2021
  3. PREMARIN [Suspect]
     Active Substance: ESTROGENS, CONJUGATED
     Indication: Atrophic vulvovaginitis
  4. PREMARIN [Suspect]
     Active Substance: ESTROGENS, CONJUGATED
     Indication: Menopause
  5. ESTRADIOL [Concomitant]
     Active Substance: ESTRADIOL
     Indication: Bone disorder
     Dosage: 0.5 MG
  6. ALENDRONATE SODIUM [Concomitant]
     Active Substance: ALENDRONATE SODIUM
     Dosage: ONCE A WEEK IN MORNING

REACTIONS (5)
  - Neuromyopathy [Unknown]
  - Hip fracture [Unknown]
  - Eye disorder [Unknown]
  - Bradykinesia [Unknown]
  - Expired product administered [Unknown]

NARRATIVE: CASE EVENT DATE: 20160101
